FAERS Safety Report 9759344 (Version 1)
Quarter: 2013Q4

REPORT INFORMATION
  Report Type: Spontaneous
  Country: US (occurrence: None)
  Receive Date: 20131216
  Receipt Date: 20131216
  Transmission Date: 20140711
  Serious: Yes (Other)
  Sender: FDA-Public Use
  Company Number: 163-21880-12041441(0)

PATIENT
  Age: 72 Year
  Sex: Female
  Weight: 72 kg

DRUGS (2)
  1. REVLIMID(LENALIDOMIDE)(25 MILLIGRAM, CAPSULES) [Suspect]
     Indication: PLASMA CELL MYELOMA
     Dosage: 25 MG, 1 IN 1 D, PO?15 MG, 21 IN 21 D, PO
  2. DEXAMETHASONE (DEXAMETHASONE) (TABLETS) [Suspect]
     Indication: PLASMA CELL MYELOMA
     Dosage: 5 TAB, 1 IN 1 WK, UNK

REACTIONS (1)
  - Bone pain [None]
